FAERS Safety Report 12162463 (Version 1)
Quarter: 2016Q1

REPORT INFORMATION
  Report Type: Spontaneous
  Country: CA (occurrence: None)
  Receive Date: 20160308
  Receipt Date: 20160308
  Transmission Date: 20160526
  Serious: Yes (Disabling)
  Sender: FDA-Public Use
  Company Number: None

PATIENT
  Age: 65 Year
  Sex: Female
  Weight: 55.79 kg

DRUGS (13)
  1. LORAZEPAM. [Concomitant]
     Active Substance: LORAZEPAM
  2. PROBIOTIC [Concomitant]
     Active Substance: PROBIOTICS NOS
  3. RENEW LIFE [Concomitant]
  4. VITAMIN D3 [Concomitant]
     Active Substance: CHOLECALCIFEROL
  5. TECTA [Concomitant]
     Active Substance: PANTOPRAZOLE MAGNESIUM
  6. QUETIAPINE [Concomitant]
     Active Substance: QUETIAPINE
  7. TEMAZEPAM. [Concomitant]
     Active Substance: TEMAZEPAM
  8. CONSETILLA [Concomitant]
  9. CALCIUM [Concomitant]
     Active Substance: CALCIUM
  10. SYMBICORT [Concomitant]
     Active Substance: BUDESONIDE\FORMOTEROL FUMARATE DIHYDRATE
  11. CALQ - MAG [Concomitant]
  12. PROLIA [Suspect]
     Active Substance: DENOSUMAB
     Dosage: 1 INJECTION EVERY 6 MONTHS 2 INJECTIONS PER YEAR INJECTION
     Dates: start: 20151014
  13. VIT K [Concomitant]

REACTIONS (11)
  - Gastrointestinal disorder [None]
  - Bone pain [None]
  - Abdominal discomfort [None]
  - Gastrooesophageal reflux disease [None]
  - Bone density decreased [None]
  - Dyspnoea [None]
  - Influenza like illness [None]
  - Fatigue [None]
  - Constipation [None]
  - Drug interaction [None]
  - Palpitations [None]

NARRATIVE: CASE EVENT DATE: 20151020
